FAERS Safety Report 19006843 (Version 2)
Quarter: 2021Q2

REPORT INFORMATION
  Report Type: Report from Study
  Country: None (occurrence: US)
  Receive Date: 20210315
  Receipt Date: 20210614
  Transmission Date: 20210717
  Serious: Yes (Hospitalization)
  Sender: FDA-Public Use
  Company Number: US-ABBVIE-21K-163-3752619-00

PATIENT
  Age: 67 Year
  Sex: Male

DRUGS (1)
  1. RINVOQ [Suspect]
     Active Substance: UPADACITINIB
     Indication: RHEUMATOID ARTHRITIS
     Route: 048

REACTIONS (11)
  - Spinal cord compression [Unknown]
  - Gait inability [Unknown]
  - Staphylococcal infection [Recovered/Resolved]
  - Skin ulcer [Recovering/Resolving]
  - Decubitus ulcer [Not Recovered/Not Resolved]
  - Bursitis [Unknown]
  - Arthritis [Unknown]
  - Tremor [Unknown]
  - Localised infection [Recovered/Resolved]
  - Peripheral swelling [Not Recovered/Not Resolved]
  - Grip strength decreased [Unknown]

NARRATIVE: CASE EVENT DATE: 202011
